FAERS Safety Report 6178418-9 (Version None)
Quarter: 2009Q2

REPORT INFORMATION
  Report Type: 
  Country: None (occurrence: None)
  Receive Date: 20090504
  Receipt Date: 20090424
  Transmission Date: 20091009
  Serious: Yes (Hospitalization)
  Sender: FDA-Public Use
  Company Number: FR-AMGEN-UK283032

PATIENT
  Sex: Male

DRUGS (12)
  1. PANITUMUMAB [Suspect]
     Indication: COLORECTAL CANCER
     Route: 042
     Dates: start: 20080408, end: 20080924
  2. IRINOTECAN HCL [Suspect]
  3. FLUVASTATIN [Concomitant]
     Route: 048
     Dates: start: 20070101
  4. SECTRAL [Concomitant]
     Route: 048
     Dates: start: 20020101
  5. FLUOROURACIL [Concomitant]
  6. LEUCOVORIN CALCIUM [Concomitant]
  7. KARDEGIC [Concomitant]
     Route: 048
     Dates: start: 20020101
  8. CAPTOPRIL [Concomitant]
  9. FELODIPINE [Concomitant]
  10. FLECAINE [Concomitant]
  11. IMODIUM [Concomitant]
     Route: 048
     Dates: start: 20080408
  12. IMODIUM [Concomitant]
     Dates: start: 20080506

REACTIONS (3)
  - ANOREXIA [None]
  - DIARRHOEA [None]
  - NAUSEA [None]
